FAERS Safety Report 4569160-6 (Version None)
Quarter: 2005Q1

REPORT INFORMATION
  Report Type: 
  Country: None (occurrence: None)
  Receive Date: 20050131
  Receipt Date: 20050119
  Transmission Date: 20050727
  Serious: Yes (Death, Other)
  Sender: FDA-Public Use
  Company Number: 2005-00106

PATIENT
  Age: 75 Year

DRUGS (1)
  1. IMMUCYST (BCG - IT (CONNAUGHT)), AVENTIS PASTEUR LTD. [Suspect]
     Indication: BLADDER CANCER
     Dosage: 81.0 MG
     Dates: start: 20050104

REACTIONS (6)
  - BLOOD PRESSURE DECREASED [None]
  - BOVINE TUBERCULOSIS [None]
  - DISSEMINATED INTRAVASCULAR COAGULATION [None]
  - EMPHYSEMA [None]
  - MULTI-ORGAN FAILURE [None]
  - SEPTIC SHOCK [None]
